FAERS Safety Report 8407643-9 (Version None)
Quarter: 2012Q2

REPORT INFORMATION
  Report Type: 
  Country: None (occurrence: None)
  Receive Date: 20120604
  Receipt Date: 20120525
  Transmission Date: 20120825
  Serious: Yes (Other)
  Sender: FDA-Public Use
  Company Number: JP-PFIZER INC-2012130979

PATIENT
  Age: 79 Year
  Sex: Female

DRUGS (4)
  1. DILTIAZEM HCL [Suspect]
     Dosage: 100 MG, UNK
     Route: 048
     Dates: start: 20120401, end: 20120501
  2. NICORANDIL [Suspect]
     Dosage: UNK
     Route: 048
  3. WARFARIN [Suspect]
     Dosage: UNK
     Route: 048
  4. AMIODARONE HYDROCHLORIDE [Suspect]
     Dosage: UNK

REACTIONS (1)
  - SKIN EXFOLIATION [None]
